FAERS Safety Report 24892512 (Version 6)
Quarter: 2025Q1

REPORT INFORMATION
  Report Type: Spontaneous
  Country: US (occurrence: None)
  Receive Date: 20250128
  Receipt Date: 20250318
  Transmission Date: 20250409
  Serious: Yes (Other)
  Sender: MDD OPERATIONS
  Company Number: US-MDD US Operations-MDD202501-000162

PATIENT
  Age: 79 Year
  Sex: Male
  Weight: 73.02 kg

DRUGS (9)
  1. APOKYN [Suspect]
     Active Substance: APOMORPHINE HYDROCHLORIDE
     Indication: Parkinson^s disease
     Route: 058
     Dates: start: 20250113
  2. APOKYN [Suspect]
     Active Substance: APOMORPHINE HYDROCHLORIDE
     Dosage: NOT PROVIDED
     Route: 058
  3. APOKYN [Suspect]
     Active Substance: APOMORPHINE HYDROCHLORIDE
     Dosage: NOT PROVIDED
     Route: 058
  4. APOKYN [Suspect]
     Active Substance: APOMORPHINE HYDROCHLORIDE
     Dates: start: 20250125
  5. APOKYN [Suspect]
     Active Substance: APOMORPHINE HYDROCHLORIDE
     Dates: start: 202501
  6. APOKYN [Suspect]
     Active Substance: APOMORPHINE HYDROCHLORIDE
     Dates: start: 202501
  7. APOKYN [Suspect]
     Active Substance: APOMORPHINE HYDROCHLORIDE
     Dates: start: 20250213
  8. APOKYN [Suspect]
     Active Substance: APOMORPHINE HYDROCHLORIDE
     Dates: start: 2025, end: 2025
  9. RYTARY [Concomitant]
     Active Substance: CARBIDOPA\LEVODOPA
     Indication: Parkinson^s disease

REACTIONS (22)
  - Hypertension [Recovering/Resolving]
  - Amnesia [Recovering/Resolving]
  - Unresponsive to stimuli [Recovering/Resolving]
  - Hypertension [Recovering/Resolving]
  - Hypotension [Recovering/Resolving]
  - Syncope [Recovered/Resolved]
  - Syncope [Recovered/Resolved]
  - Syncope [Recovered/Resolved]
  - Movement disorder [Recovering/Resolving]
  - Dysstasia [Recovering/Resolving]
  - Abnormal behaviour [Recovering/Resolving]
  - On and off phenomenon [Recovering/Resolving]
  - Influenza [Recovered/Resolved]
  - Incoherent [Recovered/Resolved]
  - Injection site bruising [Not Recovered/Not Resolved]
  - Somnolence [Recovering/Resolving]
  - Confusional state [Recovering/Resolving]
  - Somnolence [Recovering/Resolving]
  - Fall [Recovering/Resolving]
  - Hyperhidrosis [Recovered/Resolved]
  - Somnolence [Recovered/Resolved]
  - Drug effect less than expected [Unknown]

NARRATIVE: CASE EVENT DATE: 20250101
